FAERS Safety Report 15048380 (Version 4)
Quarter: 2019Q2

REPORT INFORMATION
  Report Type: Spontaneous
  Country: JP (occurrence: JP)
  Receive Date: 20180622
  Receipt Date: 20190403
  Transmission Date: 20190711
  Serious: Yes (Life-Threatening, Hospitalization, Other)
  Sender: FDA-Public Use
  Company Number: JP-BRISTOL-MYERS SQUIBB COMPANY-BMS-2018-057593

PATIENT
  Age: 65 Year
  Sex: Female
  Weight: 43.5 kg

DRUGS (2)
  1. ZOLPIDEM TARTRATE. [Concomitant]
     Active Substance: ZOLPIDEM TARTRATE
     Indication: PRODUCT USED FOR UNKNOWN INDICATION
     Route: 065
  2. OPDIVO [Suspect]
     Active Substance: NIVOLUMAB
     Indication: NON-SMALL CELL LUNG CANCER
     Dosage: 140 MG PER DAY
     Route: 041
     Dates: start: 20180508

REACTIONS (4)
  - Human T-cell lymphotropic virus type I infection [Unknown]
  - Steroid diabetes [Unknown]
  - Lung disorder [Recovered/Resolved]
  - Adult T-cell lymphoma/leukaemia [Recovered/Resolved]

NARRATIVE: CASE EVENT DATE: 20180608
